FAERS Safety Report 18337209 (Version 1)
Quarter: 2020Q4

REPORT INFORMATION
  Report Type: Spontaneous
  Country: CA (occurrence: CA)
  Receive Date: 20201001
  Receipt Date: 20201001
  Transmission Date: 20210113
  Serious: Yes (Hospitalization, Other)
  Sender: FDA-Public Use
  Company Number: CA-ROCHE-2687535

PATIENT
  Sex: Female

DRUGS (11)
  1. TECTA [Concomitant]
     Active Substance: PANTOPRAZOLE MAGNESIUM
  2. ACTEMRA [Suspect]
     Active Substance: TOCILIZUMAB
     Indication: PRODUCT USED FOR UNKNOWN INDICATION
     Dosage: ONGOING (TO BE STOPPED)
     Route: 058
     Dates: start: 201912
  3. ALEVE [Concomitant]
     Active Substance: NAPROXEN SODIUM
  4. VENTOLIN [Concomitant]
     Active Substance: ALBUTEROL SULFATE
  5. ASA [Concomitant]
     Active Substance: ASPIRIN
     Route: 048
  6. METHOTREXATE SODIUM. [Suspect]
     Active Substance: METHOTREXATE SODIUM
     Indication: PRODUCT USED FOR UNKNOWN INDICATION
     Route: 058
     Dates: start: 201805
  7. NAPROXEN. [Concomitant]
     Active Substance: NAPROXEN
  8. FOLIC ACID. [Concomitant]
     Active Substance: FOLIC ACID
  9. VOLTAREN [Concomitant]
     Active Substance: DICLOFENAC SODIUM
  10. PREDNISONE. [Concomitant]
     Active Substance: PREDNISONE
     Route: 048
     Dates: start: 201902
  11. ACTONEL [Concomitant]
     Active Substance: RISEDRONATE SODIUM

REACTIONS (6)
  - Carpal tunnel syndrome [Unknown]
  - Infection [Unknown]
  - Drug ineffective [Unknown]
  - Intentional product use issue [Unknown]
  - Urinary tract infection [Unknown]
  - Off label use [Unknown]
